FAERS Safety Report 14603424 (Version 1)
Quarter: 2018Q1

REPORT INFORMATION
  Report Type: Spontaneous
  Country: IT (occurrence: IT)
  Receive Date: 20180306
  Receipt Date: 20180306
  Transmission Date: 20180509
  Serious: Yes (Other)
  Sender: FDA-Public Use
  Company Number: IT-MYLANLABS-2018M1014114

PATIENT
  Age: 5 Decade
  Sex: Female

DRUGS (8)
  1. FLUOROURACIL. [Suspect]
     Active Substance: FLUOROURACIL
     Indication: SMALL INTESTINE ADENOCARCINOMA
     Dosage: FIRST-LINE CHEMOTHERAPY
     Route: 065
  2. 5-FLUOROURACIL                     /00098801/ [Concomitant]
     Active Substance: FLUOROURACIL
     Indication: SMALL INTESTINE ADENOCARCINOMA
     Dosage: UNK
     Route: 065
  3. FOLINIC ACID [Concomitant]
     Active Substance: LEUCOVORIN
     Indication: SMALL INTESTINE ADENOCARCINOMA
     Dosage: UNK
     Route: 065
  4. OXALIPLATIN. [Suspect]
     Active Substance: OXALIPLATIN
     Indication: SMALL INTESTINE ADENOCARCINOMA
     Dosage: FIRST-LINE CHEMOTHERAPY
     Route: 065
  5. CAPECITABINE. [Suspect]
     Active Substance: CAPECITABINE
     Indication: SMALL INTESTINE ADENOCARCINOMA
     Dosage: 625MG/MQ TWICE DAILY; CONTINUOUSLY
     Route: 065
  6. FOLINIC ACID [Suspect]
     Active Substance: LEUCOVORIN
     Indication: SMALL INTESTINE ADENOCARCINOMA
     Dosage: UNK
     Route: 065
  7. BEVACIZUMAB. [Concomitant]
     Active Substance: BEVACIZUMAB
     Indication: SMALL INTESTINE ADENOCARCINOMA
     Dosage: UNK
     Route: 065
     Dates: end: 201208
  8. PANITUMUMAB [Suspect]
     Active Substance: PANITUMUMAB
     Indication: SMALL INTESTINE ADENOCARCINOMA
     Dosage: DOSE REDUCED TO 80% OF THE FULL DOSE
     Route: 065

REACTIONS (5)
  - Nausea [Unknown]
  - Hypertension [Unknown]
  - Rash [Unknown]
  - Mucosal inflammation [Unknown]
  - Gastrointestinal toxicity [Unknown]
